FAERS Safety Report 5792205-2 (Version None)
Quarter: 2008Q2

REPORT INFORMATION
  Report Type: 
  Country: None (occurrence: None)
  Receive Date: 20080626
  Receipt Date: 20080620
  Transmission Date: 20081010
  Serious: No
  Sender: FDA-Public Use
  Company Number: US-BOEHRINGER INGELHEIM GMBH, GERMANY-2008-BP-09674BP

PATIENT
  Sex: Male

DRUGS (6)
  1. SPIRIVA [Suspect]
     Indication: CHRONIC OBSTRUCTIVE PULMONARY DISEASE
     Route: 055
     Dates: start: 20080613, end: 20080614
  2. FENTANYL-100 [Concomitant]
  3. DICYCLOMINE [Concomitant]
  4. ALPRAZOLAM [Concomitant]
  5. POLYETHYLENE GLYCOL [Concomitant]
  6. PROAIR HFA [Concomitant]
     Route: 055

REACTIONS (2)
  - ARTHRALGIA [None]
  - SENSATION OF HEAVINESS [None]
